FAERS Safety Report 6813767-X (Version None)
Quarter: 2010Q3

REPORT INFORMATION
  Report Type: 
  Country: None (occurrence: None)
  Receive Date: 20100701
  Receipt Date: 20100629
  Transmission Date: 20110219
  Serious: Yes (Death)
  Sender: FDA-Public Use
  Company Number: US-GILEAD-2010-0029663

PATIENT
  Sex: Female
  Weight: 76.272 kg

DRUGS (14)
  1. LETAIRIS [Suspect]
     Indication: PULMONARY ARTERIAL HYPERTENSION
     Route: 048
     Dates: start: 20100430
  2. REVATIO [Concomitant]
  3. WARFARIN SODIUM [Concomitant]
  4. LASIX [Concomitant]
  5. DILTIAZEM [Concomitant]
  6. DIGOXIN [Concomitant]
  7. BROVANA [Concomitant]
  8. CELLCEPT [Concomitant]
  9. FOSAMAX [Concomitant]
  10. ZOCOR [Concomitant]
  11. TYLENOL W/CODEINE 3 [Concomitant]
  12. LEVAQUIN [Concomitant]
  13. PREDNISONE TAB [Concomitant]
  14. KLOR-CON [Concomitant]

REACTIONS (1)
  - DEATH [None]
